FAERS Safety Report 7518382-0 (Version None)
Quarter: 2011Q2

REPORT INFORMATION
  Report Type: 
  Country: None (occurrence: None)
  Receive Date: 20110602
  Receipt Date: 20110517
  Transmission Date: 20111010
  Serious: No
  Sender: FDA-Public Use
  Company Number: US-B.I. PHARMACEUTICALS,INC./RIDGEFIELD-2011-BP-13337BP

PATIENT
  Age: 67 Year
  Sex: Female

DRUGS (8)
  1. OXYGEN [Concomitant]
     Indication: CHRONIC OBSTRUCTIVE PULMONARY DISEASE
  2. ATIVAN [Concomitant]
     Indication: ANXIETY
     Route: 048
  3. SPIRIVA [Suspect]
     Indication: CHRONIC OBSTRUCTIVE PULMONARY DISEASE
     Dosage: 18 MCG
     Route: 055
     Dates: start: 20101001
  4. ALBUTEROL SULFATE AUTOHALER [Concomitant]
     Indication: CHRONIC OBSTRUCTIVE PULMONARY DISEASE
     Route: 055
  5. CLONIDINE [Concomitant]
     Indication: ANXIETY
  6. CLONIDINE [Concomitant]
     Indication: HYPERTENSION
     Route: 048
  7. LEVOTHYROXINE SODIUM [Concomitant]
     Indication: THYROID DISORDER
     Dosage: 25 MCG
     Route: 048
  8. PERCOCET [Concomitant]
     Indication: SCIATIC NERVE INJURY
     Route: 048

REACTIONS (3)
  - CONSTIPATION [None]
  - JOINT SWELLING [None]
  - NERVOUSNESS [None]
